FAERS Safety Report 16515577 (Version 5)
Quarter: 2019Q3

REPORT INFORMATION
  Report Type: Spontaneous
  Country: US (occurrence: US)
  Receive Date: 20190702
  Receipt Date: 20190930
  Transmission Date: 20191004
  Serious: No
  Sender: FDA-Public Use
  Company Number: US-009507513-1906USA011559

PATIENT
  Age: 19 Year
  Sex: Female
  Weight: 69.39 kg

DRUGS (5)
  1. NEXPLANON [Suspect]
     Active Substance: ETONOGESTREL
     Dosage: 1 ROD
     Route: 059
     Dates: start: 2016, end: 201903
  2. NEXPLANON [Suspect]
     Active Substance: ETONOGESTREL
     Dosage: 1 ROD
     Route: 059
     Dates: start: 2013, end: 2016
  3. LIDOCAINE. [Concomitant]
     Active Substance: LIDOCAINE
     Indication: LOCAL ANAESTHESIA
     Dosage: UNK
     Dates: start: 20100222
  4. BETADINE [Concomitant]
     Active Substance: POVIDONE-IODINE
     Dosage: UNK
     Dates: start: 20100222
  5. IMPLANON [Suspect]
     Active Substance: ETONOGESTREL
     Indication: CONTRACEPTION
     Dosage: 1 ROD, EVERY THREE YEARS, UNDER THE SKIN IN THE LEFT ARM
     Route: 059
     Dates: start: 20100222

REACTIONS (8)
  - Headache [Unknown]
  - Nausea [Unknown]
  - Pain [Unknown]
  - Amenorrhoea [Unknown]
  - Product dose omission [Unknown]
  - Hot flush [Unknown]
  - Discomfort [Unknown]
  - Complication associated with device [Not Recovered/Not Resolved]

NARRATIVE: CASE EVENT DATE: 20100222
